FAERS Safety Report 4973489-7 (Version None)
Quarter: 2006Q2

REPORT INFORMATION
  Report Type: 
  Country: None (occurrence: None)
  Receive Date: 20060413
  Receipt Date: 20060413
  Transmission Date: 20061013
  Serious: Yes (Other)
  Sender: FDA-Public Use
  Company Number: None

PATIENT
  Age: 37 Year
  Sex: Female
  Weight: 114.9 kg

DRUGS (6)
  1. PENICILLIN [Suspect]
  2. ALBUTEROL [Concomitant]
  3. FLUNISOLIDE [Concomitant]
  4. LORATADINE [Concomitant]
  5. OMEPRAZOLE [Concomitant]
  6. ARTIFICIAL TEARS POLYVINYL ALCOHOL [Concomitant]

REACTIONS (1)
  - URTICARIA [None]
